FAERS Safety Report 7581413-6 (Version None)
Quarter: 2011Q2

REPORT INFORMATION
  Report Type: 
  Country: None (occurrence: None)
  Receive Date: 20110629
  Receipt Date: 20110617
  Transmission Date: 20111010
  Serious: Yes (Hospitalization)
  Sender: FDA-Public Use
  Company Number: PHHY2011CA53505

PATIENT
  Sex: Female

DRUGS (1)
  1. ZOLEDRONIC ACID [Suspect]
     Indication: OSTEOPOROSIS
     Dosage: 5 MG, UNK
     Route: 042
     Dates: start: 20100812

REACTIONS (5)
  - CLAVICLE FRACTURE [None]
  - FALL [None]
  - RIB FRACTURE [None]
  - CIRCULATORY COLLAPSE [None]
  - TRAUMATIC LUNG INJURY [None]
